FAERS Safety Report 5015299-0 (Version None)
Quarter: 2006Q2

REPORT INFORMATION
  Report Type: 
  Country: None (occurrence: None)
  Receive Date: 20060530
  Receipt Date: 20060530
  Transmission Date: 20061013
  Serious: Yes (Hospitalization)
  Sender: FDA-Public Use
  Company Number: None

PATIENT
  Age: 51 Year
  Sex: Female
  Weight: 65.318 kg

DRUGS (4)
  1. BEVACIZUMAB 10MG/ KG [Suspect]
     Dosage: BEVACIZUMAB   10MG/KG
     Dates: end: 20051205
  2. TARCEVA [Suspect]
     Dosage: TARCEVA 100MG PO QD
     Route: 048
     Dates: end: 20051128
  3. OXYCONTIN [Concomitant]
  4. OXYCONDONE [Concomitant]

REACTIONS (4)
  - HYPOTENSION [None]
  - PAIN [None]
  - SEPSIS [None]
  - URINE LEUKOCYTE ESTERASE POSITIVE [None]
